FAERS Safety Report 17114435 (Version 1)
Quarter: 2019Q4

REPORT INFORMATION
  Report Type: Spontaneous
  Country: JP (occurrence: JP)
  Receive Date: 20191205
  Receipt Date: 20191205
  Transmission Date: 20200122
  Serious: Yes (Death, Other)
  Sender: FDA-Public Use
  Company Number: JP-GLAXOSMITHKLINE-JP2019JPN218363

PATIENT
  Age: 8 Decade
  Sex: Female

DRUGS (1)
  1. LAMICTAL [Suspect]
     Active Substance: LAMOTRIGINE
     Indication: DEPRESSION
     Dosage: UNK
     Route: 048

REACTIONS (13)
  - Hepatic enzyme increased [Unknown]
  - Rash erythematous [Unknown]
  - Product use in unapproved indication [Unknown]
  - Acute hepatic failure [Unknown]
  - Acute kidney injury [Unknown]
  - Vanishing bile duct syndrome [Unknown]
  - Altered state of consciousness [Unknown]
  - Cytomegalovirus viraemia [Unknown]
  - Drug reaction with eosinophilia and systemic symptoms [Unknown]
  - Death [Fatal]
  - Pyrexia [Unknown]
  - Rash [Unknown]
  - Jaundice [Unknown]
